FAERS Safety Report 8592041-8 (Version None)
Quarter: 2012Q3

REPORT INFORMATION
  Report Type: 
  Country: None (occurrence: None)
  Receive Date: 20120814
  Receipt Date: 20120808
  Transmission Date: 20120928
  Serious: Yes (Other)
  Sender: FDA-Public Use
  Company Number: US-JNJFOC-20120805181

PATIENT
  Sex: Female

DRUGS (2)
  1. ROGAINE (FOR WOMEN) [Suspect]
     Route: 065
  2. ROGAINE (FOR WOMEN) [Suspect]
     Indication: PRODUCT USED FOR UNKNOWN INDICATION
     Route: 065

REACTIONS (1)
  - ATRIAL FIBRILLATION [None]
